FAERS Safety Report 22277507 (Version 1)
Quarter: 2023Q2

REPORT INFORMATION
  Report Type: Spontaneous
  Country: PT (occurrence: PT)
  Receive Date: 20230503
  Receipt Date: 20230503
  Transmission Date: 20230722
  Serious: Yes (Death, Hospitalization, Other)
  Sender: FDA-Public Use
  Company Number: PT-AMGEN-PRTSP2023072331

PATIENT

DRUGS (3)
  1. PROLIA [Suspect]
     Active Substance: DENOSUMAB
     Indication: Osteoporosis
     Dosage: UNK
     Route: 065
  2. CALCIUM [Concomitant]
     Active Substance: CALCIUM
     Indication: Mineral supplementation
     Dosage: UNK
  3. VITAMIN D [Concomitant]
     Active Substance: VITAMIN D NOS
     Indication: Vitamin supplementation
     Dosage: UNK

REACTIONS (11)
  - Death [Fatal]
  - Spinal fracture [Unknown]
  - Femoral neck fracture [Unknown]
  - Hip fracture [Unknown]
  - Periprosthetic fracture [Unknown]
  - Pathological fracture [Unknown]
  - Femur fracture [Unknown]
  - Forearm fracture [Unknown]
  - Humerus fracture [Unknown]
  - Ankle fracture [Unknown]
  - High-energy trauma [Unknown]
